FAERS Safety Report 5284457-2 (Version None)
Quarter: 2007Q1

REPORT INFORMATION
  Report Type: 
  Country: None (occurrence: None)
  Receive Date: 20061227
  Receipt Date: 20061101
  Transmission Date: 20070707
  Serious: Yes (Hospitalization)
  Sender: FDA-Public Use
  Company Number: 13563457

PATIENT
  Sex: Female

DRUGS (2)
  1. EMSAM [Suspect]
     Indication: BIPOLAR DISORDER
     Dosage: 9 MILLIGRAM, 1/24 HOUR TD
     Route: 062
  2. ANTIBIOTICS [Concomitant]

REACTIONS (3)
  - PNEUMONIA [None]
  - PRURITUS [None]
  - RASH [None]
